FAERS Safety Report 10444087 (Version 1)
Quarter: 2014Q3

REPORT INFORMATION
  Report Type: Spontaneous
  Country: IN (occurrence: IN)
  Receive Date: 20140910
  Receipt Date: 20140910
  Transmission Date: 20150326
  Serious: Yes (Other)
  Sender: FDA-Public Use
  Company Number: IN-PAR PHARMACEUTICAL, INC-2014SCPR009377

PATIENT

DRUGS (2)
  1. BUPIVACAINE W/FENTANYL [Concomitant]
     Active Substance: BUPIVACAINE\FENTANYL
     Indication: MAINTENANCE OF ANAESTHESIA
     Dosage: UNK, UNKNOWN, 3 ML OF 0.5% BUPIVACAINE WITH 25 MCG OF FENTANYL
     Route: 065
  2. PITRESSIN [Suspect]
     Active Substance: VASOPRESSIN
     Indication: HAEMOSTASIS
     Dosage: 20 U IN 20 ML SALINE
     Route: 015

REACTIONS (13)
  - Vasospasm [Recovered/Resolved]
  - Pulse absent [None]
  - Vomiting [Unknown]
  - Oxygen saturation immeasurable [None]
  - Sinus bradycardia [None]
  - Heart rate decreased [None]
  - Bradycardia [None]
  - Tongue discolouration [Unknown]
  - Pallor [None]
  - Overdose [Unknown]
  - Nausea [Unknown]
  - Blood pressure increased [None]
  - Off label use [Unknown]
